FAERS Safety Report 9216520 (Version 1)
Quarter: 2013Q2

REPORT INFORMATION
  Report Type: Spontaneous
  Country: US (occurrence: US)
  Receive Date: 20130408
  Receipt Date: 20130408
  Transmission Date: 20140414
  Serious: No
  Sender: FDA-Public Use
  Company Number: US-PFIZER INC-2013106940

PATIENT
  Age: 63 Year
  Sex: Female

DRUGS (1)
  1. CAMPTOSAR [Suspect]
     Indication: ANAL CANCER
     Dosage: 340 MG, (EVERY TWO WEEKS)
     Dates: start: 20120830

REACTIONS (2)
  - Nausea [Unknown]
  - Vomiting [Unknown]
